FAERS Safety Report 25235143 (Version 4)
Quarter: 2025Q3

REPORT INFORMATION
  Report Type: Report from Study
  Country: CA (occurrence: CA)
  Receive Date: 20250424
  Receipt Date: 20250805
  Transmission Date: 20251020
  Serious: Yes (Death, Hospitalization, Other)
  Sender: JOHNSON AND JOHNSON
  Company Number: CA-JNJFOC-20250426307

PATIENT
  Age: 50 Year
  Sex: Female

DRUGS (1)
  1. TREMFYA [Suspect]
     Active Substance: GUSELKUMAB
     Indication: Psoriasis
     Route: 058
     Dates: start: 20230414, end: 20250502

REACTIONS (10)
  - Death [Fatal]
  - Arthritis bacterial [Unknown]
  - Septic shock [Unknown]
  - Cardiac tamponade [Unknown]
  - Cardiac arrest [Unknown]
  - Liver transplant [Unknown]
  - Hepatic cirrhosis [Unknown]
  - Alcohol abuse [Unknown]
  - Latent tuberculosis [Unknown]
  - Primary biliary cholangitis [Unknown]
